FAERS Safety Report 19025464 (Version 2)
Quarter: 2021Q2

REPORT INFORMATION
  Report Type: Report from Study
  Country: GB (occurrence: JP)
  Receive Date: 20210318
  Receipt Date: 20210401
  Transmission Date: 20210717
  Serious: Yes (Hospitalization, Other)
  Sender: FDA-Public Use
  Company Number: JP-ASTELLAS-2017US019571

PATIENT
  Age: 78 Year
  Sex: Male
  Weight: 64 kg

DRUGS (22)
  1. BISOPROLOL FUMARATE. [Concomitant]
     Active Substance: BISOPROLOL FUMARATE
     Indication: ATRIAL FLUTTER
     Dosage: DOSAGE IS UNCERTAIN.
     Route: 065
     Dates: start: 20170101
  2. FAMOTIDINE. [Concomitant]
     Active Substance: FAMOTIDINE
     Indication: GASTRITIS
     Dosage: DOSAGE IS UNCERTAIN.
     Route: 065
     Dates: start: 20161223
  3. OFLOXIN [OFLOXACIN] [Concomitant]
     Indication: CATARACT
     Dosage: DOSAGE IS UNCERTAIN
     Route: 047
     Dates: start: 201608
  4. LOPERAMIDE HYDROCHLORIDE. [Concomitant]
     Active Substance: LOPERAMIDE HYDROCHLORIDE
     Indication: DIARRHOEA
     Dosage: DOSAGE IS UNCERTAIN.
     Route: 065
     Dates: start: 20161224
  5. XYLOCAINE [Concomitant]
     Active Substance: LIDOCAINE HYDROCHLORIDE
     Indication: STOMATITIS
     Dosage: DOSAGE IS UNCERTAIN
     Route: 065
     Dates: start: 20161230
  6. TRAMAL [Concomitant]
     Active Substance: TRAMADOL
     Indication: CANCER PAIN
     Dosage: DOSAGE IS UNCERTAIN.
     Route: 065
     Dates: start: 20170425
  7. METHADERM [Concomitant]
     Active Substance: DEXAMETHASONE DIPROPIONATE
     Indication: DERMATITIS ACNEIFORM
     Dosage: DOSAGE IS UNCERTAIN.
     Route: 003
     Dates: start: 20161227
  8. DOXAZOSIN [Concomitant]
     Active Substance: DOXAZOSIN MESYLATE
     Indication: HYPERTENSION
     Dosage: DOSAGE IS UNCERTAIN.
     Route: 065
     Dates: start: 20161231
  9. ETIZOLAM [Concomitant]
     Active Substance: ETIZOLAM
     Indication: INSOMNIA
     Dosage: DOSAGE IS UNCERTAIN.
     Route: 065
     Dates: start: 20161224
  10. URALYT [POTASSIUM CITRATE;SODIUM CITRATE DIHYDRATE] [Concomitant]
     Indication: HYPERURICAEMIA
     Dosage: UNK UNK, UNKNOWN FREQ.
     Route: 065
     Dates: start: 20161229
  11. LAC?B [Concomitant]
     Active Substance: BIFIDOBACTERIUM SPP.
     Indication: DIARRHOEA
     Dosage: DOSAGE IS UNCERTAIN.
     Route: 048
     Dates: start: 20161222
  12. ANFLAVATE [Concomitant]
     Active Substance: BETAMETHASONE BUTYRATE PROPIONATE
     Indication: DERMATITIS ACNEIFORM
     Dosage: DOSAGE IS UNCERTAIN.
     Route: 003
     Dates: start: 20161227
  13. BESOFTEN [Concomitant]
     Active Substance: PENTOSAN POLYSULFATE SODIUM
     Indication: DRY SKIN
     Dosage: DOSAGE IS UNCERTAIN.
     Route: 003
     Dates: start: 20161224
  14. AZUNOL [GUAIAZULENE] [Concomitant]
     Active Substance: GUAIAZULENE
     Indication: STOMATITIS
     Dosage: AZUNOL GARGLE LIQUID
     Route: 049
     Dates: start: 20161230
  15. DEXALTIN [Concomitant]
     Active Substance: DEXAMETHASONE
     Indication: STOMATITIS
     Dosage: DOSAGE IS UNCERTAIN.
     Route: 003
     Dates: start: 20161230
  16. ERLOTINIB [Suspect]
     Active Substance: ERLOTINIB
     Indication: NON-SMALL CELL LUNG CANCER METASTATIC
     Route: 048
     Dates: start: 20161220, end: 20170116
  17. ERLOTINIB [Suspect]
     Active Substance: ERLOTINIB
     Dosage: 100 MG, ONCE DAILY
     Route: 048
     Dates: start: 20170314
  18. POSTERISAN FORTE [ESCHERICHIA COLI;HYDROCORTISONE] [Concomitant]
     Indication: DIARRHOEA
     Dosage: UNK UNK, UNKNOWN FREQ.
     Route: 065
     Dates: start: 20161223
  19. URSO [Concomitant]
     Active Substance: URSODIOL
     Indication: BLOOD BILIRUBIN INCREASED
     Dosage: DOSAGE IS UNCERTAIN
     Route: 065
     Dates: start: 20161227
  20. DRENISON [FLUDROXYCORTIDE] [Concomitant]
     Indication: PARONYCHIA
     Dosage: DOSAGE IS UNCERTAIN
     Route: 065
     Dates: start: 20170124
  21. CALONAL [Concomitant]
     Active Substance: ACETAMINOPHEN
     Indication: CANCER PAIN
     Dosage: DOSAGE IS UNCERTAIN.
     Route: 065
     Dates: start: 20170411, end: 20170425
  22. ERLOTINIB [Suspect]
     Active Substance: ERLOTINIB
     Dosage: 100 MG, ONCE DAILY
     Route: 048
     Dates: start: 20170124, end: 20170228

REACTIONS (7)
  - Erythema multiforme [Recovered/Resolved]
  - Cardiac failure [Not Recovered/Not Resolved]
  - Retinal detachment [Recovering/Resolving]
  - Pulmonary haemorrhage [Recovered/Resolved]
  - Paronychia [Not Recovered/Not Resolved]
  - Stomatitis [Recovered/Resolved]
  - Cancer pain [Not Recovered/Not Resolved]

NARRATIVE: CASE EVENT DATE: 20161229
